FAERS Safety Report 9520721 (Version 1)
Quarter: 2013Q3

REPORT INFORMATION
  Report Type: Spontaneous
  Country: US (occurrence: None)
  Receive Date: 20130911
  Receipt Date: 20130911
  Transmission Date: 20140515
  Serious: Yes (Other)
  Sender: FDA-Public Use
  Company Number: None

PATIENT
  Age: 42 Year
  Sex: Female
  Weight: 57.61 kg

DRUGS (1)
  1. FENTANYL [Suspect]
     Dosage: 1Q48H TO SKIN
     Route: 062
     Dates: start: 201209

REACTIONS (3)
  - Application site vesicles [None]
  - Application site pruritus [None]
  - Product substitution issue [None]
